FAERS Safety Report 4397355-3 (Version None)
Quarter: 2004Q2

REPORT INFORMATION
  Report Type: 
  Country: None (occurrence: None)
  Receive Date: 20040621
  Receipt Date: 20040301
  Transmission Date: 20050107
  Serious: Yes (Death)
  Sender: FDA-Public Use
  Company Number: USA-2004-0013465

PATIENT
  Age: 37 Year
  Sex: Male
  Weight: 89.3 kg

DRUGS (8)
  1. OXYCODONE HCL [Suspect]
  2. MORPHINE SULFATE [Suspect]
  3. ACETAMINOPHEN [Suspect]
  4. SALICYLATES (SALICYLATES) [Suspect]
  5. QUININE (QUININE) [Suspect]
  6. QUINIDINE (QUINIDINE) [Suspect]
  7. DIAZEPAM [Suspect]
  8. VENLAFAXINE HCL [Suspect]

REACTIONS (2)
  - ACCIDENTAL OVERDOSE [None]
  - MULTIPLE DRUG OVERDOSE [None]
